FAERS Safety Report 19576940 (Version 1)
Quarter: 2021Q3

REPORT INFORMATION
  Report Type: Spontaneous
  Country: US (occurrence: US)
  Receive Date: 20210719
  Receipt Date: 20210719
  Transmission Date: 20211014
  Serious: Yes (Disabling)
  Sender: FDA-Public Use
  Company Number: None

PATIENT
  Age: 38 Year
  Sex: Female
  Weight: 40.5 kg

DRUGS (2)
  1. GABAPENTIN 600 MG TABLETS AND 300 MG CAPSULES [Suspect]
     Active Substance: GABAPENTIN
     Indication: INSOMNIA
     Dosage: ?          QUANTITY:2 TABLET(S);OTHER ROUTE:J?TUBE?
     Dates: start: 20180808, end: 20210712
  2. GABAPENTIN. [Suspect]
     Active Substance: GABAPENTIN
     Indication: POST HERPETIC NEURALGIA
     Dosage: ?          QUANTITY:2 CAPSULE(S);OTHER ROUTE:J?TUBE?
     Dates: start: 20210520, end: 20210712

REACTIONS (1)
  - Drug ineffective [None]

NARRATIVE: CASE EVENT DATE: 20210520
